FAERS Safety Report 4623090-X (Version None)
Quarter: 2005Q1

REPORT INFORMATION
  Report Type: 
  Country: None (occurrence: None)
  Receive Date: 20050328
  Receipt Date: 20050328
  Transmission Date: 20050727
  Serious: Yes (Life-Threatening)
  Sender: FDA-Public Use
  Company Number: None

PATIENT
  Age: 63 Year
  Sex: Female
  Weight: 58.9676 kg

DRUGS (7)
  1. LINEZOLID   600 MG   PFIZER [Suspect]
     Indication: ENTEROCOCCAL INFECTION
     Dosage: 600 MG   EVERY 12 HOURS   INTRAVENOU
     Route: 042
     Dates: start: 20050204, end: 20050213
  2. AMIKACIN [Concomitant]
  3. AMPHO B BLADDER WASH [Concomitant]
  4. CEFEPIME [Concomitant]
  5. CIPROFLOXACIN HCL [Concomitant]
  6. SEPTRA [Concomitant]
  7. VORICONAZOLE [Concomitant]

REACTIONS (2)
  - PLATELET COUNT DECREASED [None]
  - WHITE BLOOD CELL COUNT DECREASED [None]
